FAERS Safety Report 10144169 (Version 2)
Quarter: 2014Q4

REPORT INFORMATION
  Report Type: Spontaneous
  Country: IT (occurrence: IT)
  Receive Date: 20140430
  Receipt Date: 20141024
  Transmission Date: 20150528
  Serious: Yes (Hospitalization)
  Sender: FDA-Public Use
  Company Number: PHHY2014IT052092

PATIENT
  Age: 52 Year
  Sex: Female

DRUGS (12)
  1. MOMETASONE [Suspect]
     Active Substance: MOMETASONE
     Indication: PYREXIA
  2. TACHIFLUDEC [Suspect]
     Active Substance: ACETAMINOPHEN\ASCORBIC ACID\PHENYLEPHRINE
     Indication: PHARYNGITIS
     Dosage: 2 DF, UNK
     Route: 048
     Dates: start: 20140210, end: 20140215
  3. ROCEFIN [Suspect]
     Active Substance: CEFTRIAXONE SODIUM
     Indication: PHARYNGITIS
     Dosage: 1 DF, QD
     Route: 030
     Dates: start: 20140210, end: 20140213
  4. ROCEFIN [Suspect]
     Active Substance: CEFTRIAXONE SODIUM
     Indication: PYREXIA
  5. TANTUM VERDE [Suspect]
     Active Substance: BENZYDAMINE HYDROCHLORIDE
     Indication: PHARYNGITIS
     Route: 065
     Dates: start: 20140210, end: 20140214
  6. TACHIFLUDEC [Suspect]
     Active Substance: ACETAMINOPHEN\ASCORBIC ACID\PHENYLEPHRINE
     Indication: PYREXIA
  7. ASPIRINA [Suspect]
     Active Substance: ASPIRIN
     Indication: PHARYNGITIS
     Dosage: 1 DF, QD
     Route: 048
     Dates: start: 20140214, end: 20140215
  8. ASPIRINA [Suspect]
     Active Substance: ASPIRIN
     Indication: PYREXIA
  9. TANTUM VERDE [Suspect]
     Active Substance: BENZYDAMINE HYDROCHLORIDE
     Indication: PYREXIA
  10. AUGMENTIN [Suspect]
     Active Substance: AMOXICILLIN\CLAVULANATE POTASSIUM
     Indication: PHARYNGITIS
     Dosage: 2 DF, QD
     Route: 048
     Dates: start: 20140213, end: 20140215
  11. AUGMENTIN [Suspect]
     Active Substance: AMOXICILLIN\CLAVULANATE POTASSIUM
     Indication: PYREXIA
  12. MOMETASONE [Suspect]
     Active Substance: MOMETASONE
     Indication: PHARYNGITIS
     Route: 065
     Dates: start: 20140210, end: 20140214

REACTIONS (2)
  - Erythema [Recovering/Resolving]
  - Pruritus [Recovering/Resolving]

NARRATIVE: CASE EVENT DATE: 20140215
